FAERS Safety Report 9464778 (Version 2)
Quarter: 2013Q3

REPORT INFORMATION
  Report Type: Spontaneous
  Country: FR (occurrence: FR)
  Receive Date: 20130819
  Receipt Date: 20130903
  Transmission Date: 20140515
  Serious: Yes (Other)
  Sender: FDA-Public Use
  Company Number: FR-GLAXOSMITHKLINE-B0914156A

PATIENT
  Age: 73 Year
  Sex: Female

DRUGS (2)
  1. SERETIDE DISKUS [Suspect]
     Indication: PRODUCT USED FOR UNKNOWN INDICATION
     Dates: start: 201303, end: 201303
  2. SERESTA [Concomitant]

REACTIONS (2)
  - Glossodynia [Not Recovered/Not Resolved]
  - Product quality issue [Unknown]
